FAERS Safety Report 15561040 (Version 1)
Quarter: 2018Q4

REPORT INFORMATION
  Report Type: Spontaneous
  Country: US (occurrence: US)
  Receive Date: 20181029
  Receipt Date: 20181029
  Transmission Date: 20190205
  Serious: Yes (Hospitalization, Disabling)
  Sender: FDA-Public Use
  Company Number: None

PATIENT
  Age: 50 Year
  Sex: Female
  Weight: 85.5 kg

DRUGS (4)
  1. LEVAQUIN [Suspect]
     Active Substance: LEVOFLOXACIN
     Indication: ABDOMINAL INFECTION
     Dosage: ?          QUANTITY:1 TABLET(S);?
     Route: 048
     Dates: start: 20181011, end: 20181014
  2. JUNEL [Concomitant]
     Active Substance: ETHINYL ESTRADIOL\NORETHINDRONE ACETATE
  3. DOXYCYCLINE. [Concomitant]
     Active Substance: DOXYCYCLINE
  4. FLAGYL [Concomitant]
     Active Substance: METRONIDAZOLE\METRONIDAZOLE HYDROCHLORIDE

REACTIONS (26)
  - Photophobia [None]
  - Hypoaesthesia [None]
  - Feeling abnormal [None]
  - Heart rate increased [None]
  - Joint stiffness [None]
  - Phlebitis [None]
  - Swollen tongue [None]
  - Vitreous floaters [None]
  - Infusion site joint erythema [None]
  - Urticaria [None]
  - Tendonitis [None]
  - Hyperacusis [None]
  - Product use complaint [None]
  - Seizure [None]
  - Agitation [None]
  - Condition aggravated [None]
  - Underdose [None]
  - Pharyngeal oedema [None]
  - Nausea [None]
  - Tinnitus [None]
  - Post procedural sepsis [None]
  - Infusion site pain [None]
  - Gait disturbance [None]
  - Muscular weakness [None]
  - Fatigue [None]
  - Paraesthesia [None]

NARRATIVE: CASE EVENT DATE: 20181011
